FAERS Safety Report 7791326-2 (Version None)
Quarter: 2011Q4

REPORT INFORMATION
  Report Type: 
  Country: None (occurrence: None)
  Receive Date: 20111003
  Receipt Date: 20110920
  Transmission Date: 20120403
  Serious: No
  Sender: FDA-Public Use
  Company Number: US-BIOGENIDEC-2011BI036237

PATIENT
  Age: 52 Year
  Sex: Female

DRUGS (2)
  1. AVONEX [Suspect]
     Indication: MULTIPLE SCLEROSIS
     Route: 030
     Dates: start: 20110914, end: 20110914
  2. LISINOPRIL [Concomitant]
     Indication: DIABETIC NEPHROPATHY

REACTIONS (3)
  - OEDEMA PERIPHERAL [None]
  - NEUROPATHY PERIPHERAL [None]
  - DIARRHOEA [None]
